FAERS Safety Report 18481945 (Version 2)
Quarter: 2021Q2

REPORT INFORMATION
  Report Type: Report from Study
  Country: US (occurrence: US)
  Receive Date: 20201109
  Receipt Date: 20210402
  Transmission Date: 20210717
  Serious: No
  Sender: FDA-Public Use
  Company Number: NVSC2020US295801

PATIENT
  Age: 82 Year
  Sex: Female

DRUGS (1)
  1. ENTRESTO [Suspect]
     Active Substance: SACUBITRIL\VALSARTAN
     Indication: CARDIAC DISORDER
     Dosage: 1 DF, BID (49 MG)
     Route: 048
     Dates: start: 2017

REACTIONS (6)
  - Chronic obstructive pulmonary disease [Recovering/Resolving]
  - Sleep apnoea syndrome [Recovering/Resolving]
  - Blood glucose increased [Unknown]
  - Lung disorder [Recovering/Resolving]
  - Fracture [Unknown]
  - Balance disorder [Not Recovered/Not Resolved]

NARRATIVE: CASE EVENT DATE: 20201103
